FAERS Safety Report 11530150 (Version 1)
Quarter: 2015Q3

REPORT INFORMATION
  Report Type: Spontaneous
  Country: US (occurrence: US)
  Receive Date: 20150921
  Receipt Date: 20150921
  Transmission Date: 20151125
  Serious: Yes (Hospitalization)
  Sender: FDA-Public Use
  Company Number: US-GLAXOSMITHKLINE-US2015GSK133553

PATIENT
  Age: 84 Year
  Sex: Male

DRUGS (24)
  1. DONEPEZIL. [Concomitant]
     Active Substance: DONEPEZIL
  2. RANOLAZINE [Concomitant]
     Active Substance: RANOLAZINE
  3. ISOSORBIDE MONONITRATE. [Concomitant]
     Active Substance: ISOSORBIDE MONONITRATE
  4. MACROGOL [Concomitant]
     Active Substance: POLYETHYLENE GLYCOLS
  5. HYDROCODONE [Concomitant]
     Active Substance: HYDROCODONE
  6. OXYGEN. [Concomitant]
     Active Substance: OXYGEN
  7. PYRIDOXINE HYDROCHLORIDE. [Concomitant]
     Active Substance: PYRIDOXINE HYDROCHLORIDE
  8. ACETYLSALICYLIC ACID [Concomitant]
     Active Substance: ASPIRIN
  9. OXYBUTYNIN HYDROCHLORIDE TABLET [Concomitant]
  10. TAMSULOSIN [Concomitant]
     Active Substance: TAMSULOSIN
  11. PANTOPRAZOLE [Concomitant]
     Active Substance: PANTOPRAZOLE SODIUM
  12. CALCIUM MEFOLINATE [Concomitant]
     Active Substance: CALCIUM MEFOLINATE
  13. COREG [Suspect]
     Active Substance: CARVEDILOL
     Indication: CARDIAC FAILURE CONGESTIVE
  14. CARVEDILOL. [Suspect]
     Active Substance: CARVEDILOL
     Indication: CARDIAC FAILURE CONGESTIVE
  15. RAMIPRIL. [Concomitant]
     Active Substance: RAMIPRIL
  16. GLIMEPIRIDE + METFORMIN [Concomitant]
  17. ONDANSETRON [Concomitant]
     Active Substance: ONDANSETRON
  18. GUAIFENESIN. [Concomitant]
     Active Substance: GUAIFENESIN
  19. SERTRALINE [Concomitant]
     Active Substance: SERTRALINE HYDROCHLORIDE
  20. GLYCERYL TRINITRATE [Concomitant]
     Active Substance: NITROGLYCERIN
  21. ATORVASTATIN CALCIUM. [Concomitant]
     Active Substance: ATORVASTATIN CALCIUM
  22. PARACETAMOL [Concomitant]
     Active Substance: ACETAMINOPHEN
  23. GABAPENTIN. [Concomitant]
     Active Substance: GABAPENTIN
  24. TRAMADOL. [Concomitant]
     Active Substance: TRAMADOL

REACTIONS (5)
  - Hypotension [Recovered/Resolved]
  - Tri-iodothyronine abnormal [Unknown]
  - Sinus bradycardia [Recovered/Resolved]
  - Accidental overdose [Unknown]
  - Thyroxine abnormal [Unknown]

NARRATIVE: CASE EVENT DATE: 20150512
